FAERS Safety Report 7424093-2 (Version None)
Quarter: 2011Q2

REPORT INFORMATION
  Report Type: 
  Country: None (occurrence: None)
  Receive Date: 20110419
  Receipt Date: 20110414
  Transmission Date: 20111010
  Serious: Yes (Hospitalization, Congenital Anomaly, Other)
  Sender: FDA-Public Use
  Company Number: GXKR2011DE01481

PATIENT
  Sex: Male
  Weight: 2.34 kg

DRUGS (2)
  1. THYROXIN [Concomitant]
     Dosage: MATERNAL DOSE: 150 UG DAILY
     Route: 064
  2. FLUOXETINE [Suspect]
     Dosage: MATERNAL DOSE 5 MG/DAY
     Route: 064

REACTIONS (13)
  - PULMONARY ARTERY STENOSIS [None]
  - PREMATURE BABY [None]
  - HYPOCALCAEMIA [None]
  - ATRIAL SEPTAL DEFECT [None]
  - MYOCLONUS [None]
  - MATERNAL DRUGS AFFECTING FOETUS [None]
  - RETINOPATHY OF PREMATURITY [None]
  - ANAEMIA NEONATAL [None]
  - NEONATAL RESPIRATORY DISTRESS SYNDROME [None]
  - DRUG EXPOSURE DURING PREGNANCY [None]
  - HYPOGLYCAEMIA NEONATAL [None]
  - FEEDING DISORDER NEONATAL [None]
  - HYPERBILIRUBINAEMIA NEONATAL [None]
